FAERS Safety Report 7768510-7 (Version None)
Quarter: 2011Q3

REPORT INFORMATION
  Report Type: 
  Country: None (occurrence: None)
  Receive Date: 20110922
  Receipt Date: 20110606
  Transmission Date: 20111222
  Serious: No
  Sender: FDA-Public Use
  Company Number: US-ASTRAZENECA-2011SE15699

PATIENT
  Age: 50 Year
  Sex: Female

DRUGS (27)
  1. LASIX [Concomitant]
  2. PRAVASTATIN [Concomitant]
  3. BYETTA [Concomitant]
  4. ALBUTEROL [Concomitant]
  5. TRAMODOL [Concomitant]
  6. METHTRIATE [Concomitant]
  7. AMBIEN [Concomitant]
  8. ELAVIL [Concomitant]
  9. MORPHINE SULFATE [Concomitant]
  10. SEROQUEL [Suspect]
     Route: 048
     Dates: start: 20080101, end: 20110301
  11. GLIPIZIDE [Concomitant]
  12. LIDODERM [Concomitant]
  13. TOPAMAX [Concomitant]
  14. ATIVAN [Concomitant]
  15. VICODAN [Concomitant]
  16. CYMBALTA [Concomitant]
  17. METFORMIN [Concomitant]
  18. PREMETHAZINE [Concomitant]
  19. SEROQUEL [Suspect]
     Indication: MAJOR DEPRESSION
     Route: 048
     Dates: start: 20030101, end: 20080101
  20. POTASSIUM [Concomitant]
  21. LEVOTHYROXINE SODIUM [Concomitant]
  22. GABAPENTIN [Concomitant]
  23. HYDROXYZINE [Concomitant]
  24. LISINOPRIL [Concomitant]
  25. FOLIC ACID [Concomitant]
  26. RITALIN [Concomitant]
  27. FLUTICASONE NASAL SPRAY [Concomitant]

REACTIONS (9)
  - HALLUCINATION, AUDITORY [None]
  - HALLUCINATION [None]
  - PSORIATIC ARTHROPATHY [None]
  - INCORRECT DOSE ADMINISTERED [None]
  - NAUSEA [None]
  - DEPRESSION [None]
  - INSOMNIA [None]
  - SYSTEMIC LUPUS ERYTHEMATOSUS [None]
  - DRUG DOSE OMISSION [None]
